FAERS Safety Report 21777365 (Version 1)
Quarter: 2022Q4

REPORT INFORMATION
  Report Type: Spontaneous
  Country: US (occurrence: None)
  Receive Date: 20221226
  Receipt Date: 20221226
  Transmission Date: 20230113
  Serious: No
  Sender: FDA-Public Use
  Company Number: 2022A395578

PATIENT
  Age: 793 Month
  Sex: Female
  Weight: 65.8 kg

DRUGS (1)
  1. PULMICORT FLEXHALER [Suspect]
     Active Substance: BUDESONIDE
     Indication: Oxygen saturation decreased
     Route: 055
     Dates: start: 20221125

REACTIONS (9)
  - Taste disorder [Recovered/Resolved]
  - Taste disorder [Unknown]
  - Milk allergy [Unknown]
  - Wrong technique in device usage process [Unknown]
  - Oropharyngeal pain [Not Recovered/Not Resolved]
  - Oxygen saturation decreased [Unknown]
  - Device use confusion [Unknown]
  - Intentional product misuse [Recovered/Resolved]
  - Device use error [Unknown]

NARRATIVE: CASE EVENT DATE: 20221101
